FAERS Safety Report 10171327 (Version 2)
Quarter: 2014Q2

REPORT INFORMATION
  Report Type: Spontaneous
  Country: US (occurrence: US)
  Receive Date: 20140514
  Receipt Date: 20140519
  Transmission Date: 20141212
  Serious: Yes (Other)
  Sender: FDA-Public Use
  Company Number: US-DRREDDYS-USA/USA/14/0040244

PATIENT
  Age: 66 Year
  Sex: Female
  Weight: 49.8 kg

DRUGS (1)
  1. OMEPRAZOLE MAGNESIUM DELAYED RELEASE OTC [Suspect]
     Indication: GASTROOESOPHAGEAL REFLUX DISEASE
     Route: 065
     Dates: start: 20140423, end: 20140502

REACTIONS (3)
  - Choking [Unknown]
  - Dysphagia [Recovered/Resolved]
  - Product quality issue [Unknown]
